FAERS Safety Report 5039955-3 (Version None)
Quarter: 2006Q2

REPORT INFORMATION
  Report Type: 
  Country: None (occurrence: None)
  Receive Date: 20060601
  Receipt Date: 20060113
  Transmission Date: 20061013
  Serious: No
  Sender: FDA-Public Use
  Company Number: 2005PV005531

PATIENT
  Age: 66 Year
  Sex: Male
  Weight: 96.1626 kg

DRUGS (8)
  1. BYETTA [Suspect]
     Indication: DIABETES MELLITUS NON-INSULIN-DEPENDENT
     Dosage: 5 MCG;BID;SC
     Route: 058
     Dates: start: 20051209
  2. GLUCOPHAGE [Concomitant]
  3. LANTUS [Concomitant]
  4. ZESTRIL [Concomitant]
  5. LIPITOR [Concomitant]
  6. VERAPAMIL [Concomitant]
  7. HYDROCHLOROTHIAZIDE [Concomitant]
  8. LANTUS [Concomitant]

REACTIONS (6)
  - BLOOD GLUCOSE DECREASED [None]
  - INJECTION SITE BRUISING [None]
  - INJECTION SITE ERYTHEMA [None]
  - INJECTION SITE RASH [None]
  - PALPITATIONS [None]
  - PERIPHERAL COLDNESS [None]
